FAERS Safety Report 9247298 (Version 1)
Quarter: 2013Q1

REPORT INFORMATION
  Report Type: Spontaneous
  Country: US (occurrence: None)
  Receive Date: 20130305
  Receipt Date: 20130305
  Transmission Date: 20140127
  Serious: Yes (Other)
  Sender: FDA-Public Use
  Company Number: 163-21880-12093347

PATIENT
  Age: 85 Year
  Sex: Female

DRUGS (8)
  1. REVLIMID [Suspect]
     Indication: PLASMA CELL MYELOMA
     Dosage: 21 IN 28 D
     Route: 048
     Dates: start: 20120710
  2. ACYCLOVIR (ACICLOVIR) (ACICLOVIR) [Concomitant]
  3. ASPIRIN (ACETYLSALICYLIC ACID) [Concomitant]
  4. AMLODIPINE (AMLODIPINE) [Concomitant]
  5. DEXAMETHASONE (DEXAMETHASONE) [Concomitant]
  6. LORAZEPAM (LORAZEPAM) [Concomitant]
  7. POTASSIUM CHLORIDE (POOTASSIUM CHLORIDE) [Concomitant]
  8. SIMVASTATIN (SIMVASTATIN) [Concomitant]

REACTIONS (2)
  - Thrombophlebitis superficial [None]
  - Thrombophlebitis superficial [None]
